FAERS Safety Report 13439781 (Version 2)
Quarter: 2017Q2

REPORT INFORMATION
  Report Type: Spontaneous
  Country: CN (occurrence: CN)
  Receive Date: 20170413
  Receipt Date: 20170509
  Transmission Date: 20170830
  Serious: Yes (Other)
  Sender: FDA-Public Use
  Company Number: CN-009507513-1704CHN005047

PATIENT

DRUGS (1)
  1. IMIPENEM AND CILASTATIN [Suspect]
     Active Substance: CILASTATIN SODIUM\IMIPENEM
     Dosage: 0.5 G INFUSED INTRAVENOUSLY ONCE DAILY
     Route: 042

REACTIONS (5)
  - Endocarditis [Unknown]
  - Pancreatitis [Unknown]
  - Gastrointestinal infection [Unknown]
  - Biliary tract infection [Unknown]
  - Otitis media [Unknown]
